FAERS Safety Report 12431905 (Version 1)
Quarter: 2016Q2

REPORT INFORMATION
  Report Type: Spontaneous
  Country: US (occurrence: None)
  Receive Date: 20160602
  Receipt Date: 20160602
  Transmission Date: 20160815
  Serious: Yes (Hospitalization)
  Sender: FDA-Public Use
  Company Number: None

PATIENT
  Age: 79 Year
  Sex: Male
  Weight: 68.8 kg

DRUGS (2)
  1. ETOPOSIDE. [Suspect]
     Active Substance: ETOPOSIDE
     Indication: NON-HODGKIN^S LYMPHOMA
     Route: 042
     Dates: start: 20160505, end: 20160508
  2. VINCRISTINE [Suspect]
     Active Substance: VINCRISTINE
     Indication: NON-HODGKIN^S LYMPHOMA
     Route: 042
     Dates: start: 20160505, end: 20160508

REACTIONS (6)
  - Neutropenic colitis [None]
  - Pancytopenia [None]
  - Clostridium test positive [None]
  - Anaemia [None]
  - Neutropenia [None]
  - Coronavirus test positive [None]

NARRATIVE: CASE EVENT DATE: 20160515
